FAERS Safety Report 14074017 (Version 36)
Quarter: 2019Q1

REPORT INFORMATION
  Report Type: Spontaneous
  Country: IL (occurrence: IL)
  Receive Date: 20171011
  Receipt Date: 20190214
  Transmission Date: 20190417
  Serious: Yes (Death, Hospitalization, Other)
  Sender: FDA-Public Use
  Company Number: IL-PFIZER INC-2017437140

PATIENT
  Age: 9 Decade
  Sex: Female

DRUGS (1)
  1. ELELYSO [Suspect]
     Active Substance: TALIGLUCERASE ALFA
     Indication: GAUCHER^S DISEASE
     Dosage: 1000 IU (5 VIALS THROUGH A PORT)
     Dates: end: 20181210

REACTIONS (34)
  - Fall [Unknown]
  - Discomfort [Unknown]
  - Depression [Not Recovered/Not Resolved]
  - Asthenia [Unknown]
  - Scoliosis [Unknown]
  - Dyspnoea [Unknown]
  - Back pain [Unknown]
  - Malaise [Unknown]
  - Feeling hot [Unknown]
  - Oral discomfort [Unknown]
  - Anxiety [Unknown]
  - Dizziness [Unknown]
  - Pain in extremity [Unknown]
  - Hallucination [Unknown]
  - Head injury [Unknown]
  - Pain [Unknown]
  - Ocular hyperaemia [Unknown]
  - Eye discharge [Unknown]
  - Feeling abnormal [Unknown]
  - Abdominal neoplasm [Unknown]
  - Diarrhoea [Unknown]
  - Tremor [Unknown]
  - Abdominal discomfort [Unknown]
  - Nasopharyngitis [Unknown]
  - Death [Fatal]
  - Renal failure [Unknown]
  - Back injury [Unknown]
  - Inappropriate schedule of product administration [Unknown]
  - Mental disorder [Unknown]
  - Confusional state [Recovered/Resolved]
  - Urinary tract infection [Unknown]
  - Chills [Unknown]
  - Cough [Unknown]
  - Product dose omission [Unknown]

NARRATIVE: CASE EVENT DATE: 20171102
